FAERS Safety Report 9334170 (Version 1)
Quarter: 2013Q2

REPORT INFORMATION
  Report Type: Spontaneous
  Country: US (occurrence: US)
  Receive Date: 20130606
  Receipt Date: 20130606
  Transmission Date: 20140414
  Serious: No
  Sender: FDA-Public Use
  Company Number: US-AMGEN-USASP2013019584

PATIENT
  Age: 71 Year
  Sex: Female

DRUGS (3)
  1. PROLIA [Suspect]
     Indication: OSTEOPOROSIS POSTMENOPAUSAL
     Dosage: UNK
     Dates: start: 20120321
  2. TUMS                               /00193601/ [Concomitant]
     Indication: DIARRHOEA
  3. IMODIUM [Concomitant]
     Indication: DIARRHOEA

REACTIONS (1)
  - Blood calcium decreased [Unknown]
